FAERS Safety Report 6204869-X (Version None)
Quarter: 2009Q2

REPORT INFORMATION
  Report Type: 
  Country: None (occurrence: None)
  Receive Date: 20090522
  Receipt Date: 20090512
  Transmission Date: 20091009
  Serious: Yes (Other)
  Sender: FDA-Public Use
  Company Number: 8044227

PATIENT
  Age: 51 Year
  Sex: Female

DRUGS (3)
  1. KEPPRA [Suspect]
     Dosage: 500 MG 2/D
     Dates: start: 20090101
  2. INSULIN [Concomitant]
  3. ANTIHYPERTENSIVE DRUG [Concomitant]

REACTIONS (1)
  - BLOOD GLUCOSE DECREASED [None]
